FAERS Safety Report 18885703 (Version 2)
Quarter: 2021Q1

REPORT INFORMATION
  Report Type: Spontaneous
  Country: JP (occurrence: JP)
  Receive Date: 20210212
  Receipt Date: 20210225
  Transmission Date: 20210420
  Serious: Yes (Other)
  Sender: FDA-Public Use
  Company Number: JP-GLAXOSMITHKLINE-JP2021JPN012701

PATIENT
  Age: 84 Year
  Sex: Female

DRUGS (15)
  1. SERETIDE [Suspect]
     Active Substance: FLUTICASONE PROPIONATE\SALMETEROL XINAFOATE
     Dosage: UNK, QD
     Route: 055
     Dates: start: 20200319
  2. FLUTIDE [FLUTICASONE PROPIONATE] [Suspect]
     Active Substance: FLUTICASONE PROPIONATE
     Indication: ASTHMA
     Dosage: 1 INHALATION PER DAY
     Route: 055
     Dates: end: 20200319
  3. AMLODIN OD [Concomitant]
     Active Substance: AMLODIPINE BESYLATE
     Indication: HYPERTENSION
     Dosage: 5 MG, QD
     Route: 048
  4. HIRUDOID SOFT OINTMENT [Concomitant]
     Indication: XEROSIS
     Dosage: UNK, BID, ON THE LOWER LIMBS
     Dates: start: 20191017
  5. LAMISIL [Concomitant]
     Active Substance: TERBINAFINE HYDROCHLORIDE
     Indication: FUNGAL SKIN INFECTION
     Dosage: UNK, QD, ON THE TOE
     Dates: start: 20191017
  6. PREDNISOLONE. [Suspect]
     Active Substance: PREDNISOLONE
     Dosage: 2.5 MG EVERY 3 DAYS
     Route: 048
     Dates: start: 20181115
  7. OPALMON [Concomitant]
     Active Substance: LIMAPROST
     Indication: SPINAL STENOSIS
     Dosage: 5 ?G, TID
     Route: 048
     Dates: start: 20180703
  8. ONON CAPSULES [Concomitant]
     Indication: ASTHMA
     Dosage: 225 MG, BID
     Route: 048
  9. NITOROL [Concomitant]
     Active Substance: ISOSORBIDE DINITRATE
     Indication: ANGINA PECTORIS
     Dosage: 1 TABLET UNDER THE TONGUE AT ONSET OF CHEST PAIN
     Route: 060
  10. MUCOSTA TABLETS [Concomitant]
     Indication: GASTROINTESTINAL DISORDER
     Dosage: 1 DF, AS NEEDED
     Route: 048
     Dates: start: 20191017
  11. SERETIDE [Suspect]
     Active Substance: FLUTICASONE PROPIONATE\SALMETEROL XINAFOATE
     Indication: ASTHMA
     Dosage: 2 INHALATIONS PER DAY
     Route: 055
     Dates: start: 20200319
  12. FLUNASE [Concomitant]
     Active Substance: FLUTICASONE PROPIONATE
     Indication: RHINITIS
     Dosage: NK, BID
     Route: 045
  13. LOXONIN TABLETS [Concomitant]
     Active Substance: LOXOPROFEN SODIUM
     Indication: HEADACHE
     Dosage: 1 DF, AS NEEDED
     Route: 048
     Dates: start: 20191017
  14. GASTER [Concomitant]
     Active Substance: FAMOTIDINE
     Indication: GASTROINTESTINAL DISORDER PROPHYLAXIS
     Dosage: 10 MG, BID
     Route: 048
     Dates: start: 20181115
  15. EDIROL CAPSULE [Concomitant]
     Indication: OSTEOPOROSIS
     Dosage: 0.75 ?G, QD
     Route: 048

REACTIONS (7)
  - Inappropriate schedule of product administration [Unknown]
  - Therapeutic product effect incomplete [Unknown]
  - Off label use [Unknown]
  - Oropharyngeal discomfort [Recovered/Resolved]
  - Oesophageal candidiasis [Recovered/Resolved]
  - Oropharyngeal pain [Recovered/Resolved]
  - Underdose [Unknown]

NARRATIVE: CASE EVENT DATE: 20201217
